FAERS Safety Report 17166639 (Version 1)
Quarter: 2019Q4

REPORT INFORMATION
  Report Type: Spontaneous
  Country: US (occurrence: US)
  Receive Date: 20191217
  Receipt Date: 20191217
  Transmission Date: 20200122
  Serious: Yes (Hospitalization)
  Sender: FDA-Public Use
  Company Number: US-TEVA-2019-US-1153158

PATIENT
  Age: 20 Year
  Sex: Female

DRUGS (1)
  1. ETHINYLESTRADIOL/NORGESTREL [Suspect]
     Active Substance: ETHINYL ESTRADIOL\NORGESTREL
     Indication: CONTRACEPTION
     Route: 048

REACTIONS (1)
  - Deep vein thrombosis postoperative [Recovered/Resolved]
